FAERS Safety Report 18769632 (Version 1)
Quarter: 2021Q1

REPORT INFORMATION
  Report Type: Spontaneous
  Country: US (occurrence: US)
  Receive Date: 20210121
  Receipt Date: 20210121
  Transmission Date: 20210419
  Serious: No
  Sender: FDA-Public Use
  Company Number: US-BIOGEN-2021BI00969903

PATIENT
  Sex: Female

DRUGS (1)
  1. TECFIDERA [Suspect]
     Active Substance: DIMETHYL FUMARATE
     Indication: MULTIPLE SCLEROSIS
     Route: 065
     Dates: start: 201503, end: 202010

REACTIONS (5)
  - Alopecia [Unknown]
  - Hyperhidrosis [Unknown]
  - Multiple sclerosis relapse [Unknown]
  - Furuncle [Unknown]
  - Weight increased [Unknown]
